FAERS Safety Report 5390402-1 (Version None)
Quarter: 2007Q3

REPORT INFORMATION
  Report Type: 
  Country: None (occurrence: None)
  Receive Date: 20070718
  Receipt Date: 20070423
  Transmission Date: 20080115
  Serious: No
  Sender: FDA-Public Use
  Company Number: US-KINGPHARMUSA00001-K200700514

PATIENT

DRUGS (4)
  1. LEVOXYL [Suspect]
     Indication: THYROID DISORDER
     Dosage: 88 MCG, QD
     Route: 048
     Dates: start: 20070416
  2. SINGULAIR  /01362601/ [Concomitant]
     Indication: HYPERSENSITIVITY
     Dosage: UNK, QD
     Route: 048
  3. FLONASE [Concomitant]
     Indication: HYPERSENSITIVITY
     Dosage: UNK, QD
     Route: 048
  4. FLONASE [Concomitant]

REACTIONS (1)
  - VULVOVAGINAL DISCOMFORT [None]
